FAERS Safety Report 4941726-0 (Version None)
Quarter: 2006Q1

REPORT INFORMATION
  Report Type: 
  Country: None (occurrence: None)
  Receive Date: 20060308
  Receipt Date: 20060223
  Transmission Date: 20060701
  Serious: Yes (Disabling, Other)
  Sender: FDA-Public Use
  Company Number: 2006028890

PATIENT
  Age: 53 Year
  Sex: Male
  Weight: 90.7194 kg

DRUGS (9)
  1. GLUCOTROL [Suspect]
     Indication: DIABETES MELLITUS
     Dosage: 10 MG
  2. CADUET [Suspect]
     Indication: BLOOD PRESSURE
     Dosage: 5MG/4 MG
     Dates: start: 20060101
  3. ACCUPRIL [Suspect]
     Indication: HYPERTENSION
     Dosage: 10 MG
     Dates: start: 20060101
  4. ALL OTHER THEAPEUTIC PRODUCTS (ALL OTHER THERAPEUTIC PRODUCTS) [Concomitant]
  5. CALCIUM (CALCIUM) [Concomitant]
  6. VITAMIN D [Concomitant]
  7. ASPIRIN [Concomitant]
  8. METFORMIN HCL [Concomitant]
  9. NAPROXEN [Concomitant]

REACTIONS (8)
  - ARTHRITIS [None]
  - BLOOD PRESSURE INCREASED [None]
  - BODY HEIGHT DECREASED [None]
  - CHEST PAIN [None]
  - ECONOMIC PROBLEM [None]
  - GASTROOESOPHAGEAL REFLUX DISEASE [None]
  - IMPAIRED WORK ABILITY [None]
  - WEIGHT INCREASED [None]
